FAERS Safety Report 20810121 (Version 1)
Quarter: 2022Q2

REPORT INFORMATION
  Report Type: Spontaneous
  Country: US (occurrence: US)
  Receive Date: 20220510
  Receipt Date: 20220510
  Transmission Date: 20220721
  Serious: No
  Sender: FDA-Public Use
  Company Number: US-OYSTER POINT PHARMA, INC.-2022OYS00252

PATIENT
  Age: 62 Year
  Sex: Female
  Weight: 56.689 kg

DRUGS (6)
  1. TYRVAYA [Suspect]
     Active Substance: VARENICLINE TARTRATE
     Indication: Dry eye
     Dosage: 1 SPRAY IN EACH NOSTRIL, 2X/DAY
     Route: 045
     Dates: start: 20220309, end: 20220310
  2. SYNTHROID [Concomitant]
     Active Substance: LEVOTHYROXINE SODIUM
  3. XIIDRA [Concomitant]
     Active Substance: LIFITEGRAST
  4. FLEXERIL [Concomitant]
     Active Substance: CYCLOBENZAPRINE HYDROCHLORIDE
     Dosage: UNK, AS NEEDED
  5. VITAMIN D [Concomitant]
     Active Substance: VITAMIN D NOS
  6. PREMARIN [Concomitant]
     Active Substance: ESTROGENS, CONJUGATED

REACTIONS (5)
  - Burning sensation [Recovered/Resolved]
  - Presyncope [Recovered/Resolved]
  - Feeling abnormal [Recovered/Resolved]
  - Crying [Recovered/Resolved]
  - Product delivery mechanism issue [Recovered/Resolved]

NARRATIVE: CASE EVENT DATE: 20220301
